FAERS Safety Report 9729726 (Version 1)
Quarter: 2013Q4

REPORT INFORMATION
  Report Type: Spontaneous
  Country: US (occurrence: US)
  Receive Date: 20131204
  Receipt Date: 20131204
  Transmission Date: 20140711
  Serious: No
  Sender: FDA-Public Use
  Company Number: US-GILEAD-2009-0021823

PATIENT
  Sex: Female
  Weight: 90.72 kg

DRUGS (5)
  1. LETAIRIS [Suspect]
     Indication: PULMONARY ARTERIAL HYPERTENSION
     Route: 048
     Dates: start: 20081118
  2. PROTONIX [Concomitant]
  3. ZOLOFT [Concomitant]
  4. IBUPROFEN [Concomitant]
  5. MORPHINE [Concomitant]

REACTIONS (3)
  - Headache [Recovering/Resolving]
  - Palpitations [Recovering/Resolving]
  - Abdominal pain upper [Recovering/Resolving]
